FAERS Safety Report 5351982-5 (Version None)
Quarter: 2007Q2

REPORT INFORMATION
  Report Type: 
  Country: None (occurrence: None)
  Receive Date: 20070611
  Receipt Date: 20070604
  Transmission Date: 20071010
  Serious: Yes (Hospitalization)
  Sender: FDA-Public Use
  Company Number: PHBS2007JP08726

PATIENT
  Age: 16 Year
  Sex: Female

DRUGS (1)
  1. VOLTAREN [Suspect]
     Route: 048

REACTIONS (12)
  - BLOOD PRESSURE INCREASED [None]
  - BODY TEMPERATURE INCREASED [None]
  - EOSINOPHIL COUNT INCREASED [None]
  - EOSINOPHILIC PNEUMONIA [None]
  - HEART RATE INCREASED [None]
  - INTENTIONAL OVERDOSE [None]
  - LIFE SUPPORT [None]
  - LYMPHOCYTE STIMULATION TEST POSITIVE [None]
  - MULTIPLE DRUG OVERDOSE INTENTIONAL [None]
  - RALES [None]
  - RESPIRATORY FAILURE [None]
  - SUICIDE ATTEMPT [None]
